FAERS Safety Report 15640285 (Version 1)
Quarter: 2018Q4

REPORT INFORMATION
  Report Type: Report from Study
  Country: CA (occurrence: CA)
  Receive Date: 20181120
  Receipt Date: 20181120
  Transmission Date: 20190205
  Serious: Yes (Death, Other)
  Sender: FDA-Public Use
  Company Number: CA-BAYER-2017-228580

PATIENT
  Age: 57 Year
  Sex: Male

DRUGS (2)
  1. STIVARGA [Suspect]
     Active Substance: REGORAFENIB
     Indication: HEPATOCELLULAR CARCINOMA
     Dosage: DAILY DOSE 120 MG
     Route: 048
     Dates: start: 20180607, end: 2018
  2. NEXAVAR [Suspect]
     Active Substance: SORAFENIB
     Indication: HEPATOCELLULAR CARCINOMA
     Dosage: 200 MG, BID
     Route: 048
     Dates: start: 20171027, end: 2018

REACTIONS (9)
  - Hepatocellular carcinoma [Not Recovered/Not Resolved]
  - Liver disorder [Unknown]
  - Abdominal distension [Not Recovered/Not Resolved]
  - Rash [Not Recovered/Not Resolved]
  - Adrenal mass [Not Recovered/Not Resolved]
  - Bladder disorder [Unknown]
  - Death [Fatal]
  - Off label use [None]
  - Off label use [None]

NARRATIVE: CASE EVENT DATE: 2017
